FAERS Safety Report 10513506 (Version 1)
Quarter: 2014Q4

REPORT INFORMATION
  Report Type: Spontaneous
  Country: NL (occurrence: NL)
  Receive Date: 20141013
  Receipt Date: 20141013
  Transmission Date: 20150528
  Serious: Yes (Other)
  Sender: FDA-Public Use
  Company Number: NL-TEVA-513353ISR

PATIENT
  Age: 54 Year
  Sex: Female
  Weight: 80 kg

DRUGS (6)
  1. OMEPRAZOL RP CAPSULE MSR 20MG - NON-CURRENT DRUG [Concomitant]
     Dosage: ONCE DAILY ONE PIECE
     Route: 048
     Dates: start: 201005
  2. METOPROLOLSUCCINAAT SANDOZ RET 100 TABL MGA  95MG [Concomitant]
     Dosage: ONCE DAILY ONE PIECE
     Route: 048
     Dates: start: 201003
  3. TOLBUTAMIDE MYLAN TABLET  500MG [Concomitant]
     Dosage: THREE TIMES DAILY ONE PIECE
     Route: 048
  4. HYDROCHLOORTHIAZIDE PCH TABLET 25MG [Concomitant]
     Dosage: ONCE DAILY ONE PIECE
     Route: 048
     Dates: start: 201003
  5. GABAPENTINE RP CAPSULE 300MG [Suspect]
     Active Substance: GABAPENTIN
     Indication: NEURALGIA
     Route: 048
     Dates: start: 20110719, end: 20110724
  6. METFORMINE HCL A TABLET  500MG [Concomitant]
     Dosage: THREE TIMES DAILY ONE PIECE
     Route: 048
     Dates: start: 201003

REACTIONS (6)
  - Homicidal ideation [Recovering/Resolving]
  - Feeling abnormal [Recovering/Resolving]
  - Influenza like illness [Recovering/Resolving]
  - Aggression [Recovering/Resolving]
  - Dizziness [Recovering/Resolving]
  - Affect lability [Recovering/Resolving]

NARRATIVE: CASE EVENT DATE: 20110720
